FAERS Safety Report 21047829 (Version 1)
Quarter: 2022Q3

REPORT INFORMATION
  Report Type: Spontaneous
  Country: US (occurrence: None)
  Receive Date: 20220705
  Receipt Date: 20220705
  Transmission Date: 20221027
  Serious: Yes (unspecified)
  Sender: FDA-Public Use
  Company Number: None

PATIENT
  Age: 37 Year
  Sex: Female
  Weight: 67.5 kg

DRUGS (1)
  1. DICYCLOMINE [Suspect]
     Active Substance: DICYCLOMINE HYDROCHLORIDE
     Indication: Abdominal discomfort
     Dosage: OTHER QUANTITY : 1 TABLET(S);?
     Route: 048
     Dates: start: 20220701, end: 20220701

REACTIONS (8)
  - Dizziness [None]
  - Anxiety [None]
  - Confusional state [None]
  - Hypoaesthesia [None]
  - Vision blurred [None]
  - Inappropriate affect [None]
  - Blood pressure decreased [None]
  - Affective disorder [None]

NARRATIVE: CASE EVENT DATE: 20220701
